FAERS Safety Report 14167574 (Version 1)
Quarter: 2017Q4

REPORT INFORMATION
  Report Type: Report from Study
  Country: CN (occurrence: CN)
  Receive Date: 20171108
  Receipt Date: 20171108
  Transmission Date: 20180321
  Serious: Yes (Hospitalization)
  Sender: FDA-Public Use
  Company Number: CN-BAXTER-2017BAX037681

PATIENT
  Age: 66 Year
  Sex: Male

DRUGS (2)
  1. PERITONEAL DIALYSIS SOLUTION (LACTATE- G2.5%) [Suspect]
     Active Substance: CALCIUM CHLORIDE\DEXTROSE\MAGNESIUM CHLORIDE\SODIUM CHLORIDE\SODIUM LACTATE
     Indication: END STAGE RENAL DISEASE
     Route: 033
     Dates: start: 20151012
  2. PERITONEAL DIALYSIS SOLUTION (LACTATE- G1.5%) [Suspect]
     Active Substance: CALCIUM CHLORIDE\DEXTROSE\MAGNESIUM CHLORIDE\SODIUM CHLORIDE\SODIUM LACTATE
     Indication: END STAGE RENAL DISEASE
     Route: 033
     Dates: start: 20151012

REACTIONS (2)
  - Peritoneal cloudy effluent [Unknown]
  - Abdominal infection [Not Recovered/Not Resolved]

NARRATIVE: CASE EVENT DATE: 20171101
